FAERS Safety Report 24438030 (Version 1)
Quarter: 2024Q4

REPORT INFORMATION
  Report Type: Spontaneous
  Country: IN (occurrence: IN)
  Receive Date: 20241015
  Receipt Date: 20241015
  Transmission Date: 20250114
  Serious: Yes (Other)
  Sender: MYLAN
  Company Number: IN-MYLANLABS-2024M1093121

PATIENT
  Age: 52 Year
  Sex: Male

DRUGS (2)
  1. CISPLATIN [Suspect]
     Active Substance: CISPLATIN
     Indication: Non-small cell lung cancer stage IIIB
     Dosage: UNK
     Route: 065
     Dates: start: 2016, end: 2016
  2. DOCETAXEL [Suspect]
     Active Substance: DOCETAXEL
     Indication: Non-small cell lung cancer stage IIIB
     Dosage: UNK
     Route: 065
     Dates: start: 2016, end: 2016

REACTIONS (1)
  - Drug ineffective [Unknown]

NARRATIVE: CASE EVENT DATE: 20160101
